FAERS Safety Report 23437772 (Version 3)
Quarter: 2024Q2

REPORT INFORMATION
  Report Type: Spontaneous
  Country: US (occurrence: US)
  Receive Date: 20240124
  Receipt Date: 20240507
  Transmission Date: 20240716
  Serious: Yes (Other)
  Sender: FDA-Public Use
  Company Number: US-PFIZER INC-202400015895

PATIENT
  Age: 57 Year
  Sex: Female
  Weight: 58.97 kg

DRUGS (3)
  1. ESTRING [Suspect]
     Active Substance: ESTRADIOL
     Indication: Vulvovaginal dryness
     Dosage: 2 MG, EVERY 90 DAYS
     Dates: start: 20231010, end: 202401
  2. ESTRING [Suspect]
     Active Substance: ESTRADIOL
     Indication: Menopausal symptoms
     Dosage: 2 MG (1 RING)
  3. ESTRING [Suspect]
     Active Substance: ESTRADIOL
     Indication: Dyspareunia

REACTIONS (3)
  - Bacterial vulvovaginitis [Recovered/Resolved]
  - Vulvovaginal swelling [Unknown]
  - Vaginal discharge [Unknown]

NARRATIVE: CASE EVENT DATE: 20240119
